FAERS Safety Report 8391144-0 (Version None)
Quarter: 2012Q2

REPORT INFORMATION
  Report Type: 
  Country: None (occurrence: None)
  Receive Date: 20120529
  Receipt Date: 20120514
  Transmission Date: 20120825
  Serious: Yes (Other)
  Sender: FDA-Public Use
  Company Number: US-ELI_LILLY_AND_COMPANY-US200512001549

PATIENT
  Sex: Male

DRUGS (8)
  1. CYMBALTA [Suspect]
     Dosage: UNK, UNKNOWN
  2. PRISTIQ [Concomitant]
     Indication: DEPRESSION
     Dosage: UNK, UNKNOWN
  3. CYMBALTA [Suspect]
     Dosage: 60 MG, QD
  4. CYMBALTA [Suspect]
     Dosage: 30 MG, QD
  5. KLONOPIN [Concomitant]
     Indication: PANIC ATTACK
  6. CYMBALTA [Suspect]
     Indication: DEPRESSION
     Dosage: 40 MG, UNKNOWN
     Dates: start: 20041201
  7. CYMBALTA [Suspect]
     Dosage: 90 MG, QD
  8. LAMICTAL [Concomitant]
     Indication: DEPRESSION
     Dosage: UNK UNK, UNKNOWN
     Dates: start: 20041201

REACTIONS (7)
  - RASH PUSTULAR [None]
  - SKIN HAEMORRHAGE [None]
  - WRONG TECHNIQUE IN DRUG USAGE PROCESS [None]
  - PRURITUS [None]
  - PAIN [None]
  - INTENTIONAL DRUG MISUSE [None]
  - EXPIRED DRUG ADMINISTERED [None]
